FAERS Safety Report 12922894 (Version 1)
Quarter: 2016Q4

REPORT INFORMATION
  Report Type: Spontaneous
  Country: US (occurrence: US)
  Receive Date: 20161108
  Receipt Date: 20161108
  Transmission Date: 20170207
  Serious: Yes (Hospitalization, Other)
  Sender: FDA-Public Use
  Company Number: US-PFIZER INC-2016517363

PATIENT
  Sex: Female

DRUGS (4)
  1. LYRICA [Suspect]
     Active Substance: PREGABALIN
     Indication: RESTLESS LEGS SYNDROME
  2. CELEBREX [Suspect]
     Active Substance: CELECOXIB
     Indication: ADENOMATOUS POLYPOSIS COLI
     Dosage: 200 MG, 1X/DAY
     Route: 048
  3. CELEBREX [Suspect]
     Active Substance: CELECOXIB
     Indication: ARTHRITIS
  4. LYRICA [Interacting]
     Active Substance: PREGABALIN
     Indication: FIBROMYALGIA

REACTIONS (12)
  - Pneumonia [Unknown]
  - Drug interaction [Not Recovered/Not Resolved]
  - Condition aggravated [Unknown]
  - Respiratory arrest [Recovered/Resolved]
  - Chest injury [Recovered/Resolved with Sequelae]
  - Unresponsive to stimuli [Unknown]
  - Chronic obstructive pulmonary disease [Not Recovered/Not Resolved]
  - Weight decreased [Unknown]
  - Amnesia [Not Recovered/Not Resolved]
  - Loss of consciousness [Recovered/Resolved]
  - Parkinson^s disease [Not Recovered/Not Resolved]
  - Scoliosis [Unknown]
